FAERS Safety Report 10004833 (Version 8)
Quarter: 2016Q4

REPORT INFORMATION
  Report Type: Report from Study
  Country: JP (occurrence: JP)
  Receive Date: 20140312
  Receipt Date: 20161114
  Transmission Date: 20170206
  Serious: Yes (Hospitalization, Other)
  Sender: FDA-Public Use
  Company Number: JP-PFIZER INC-2014065392

PATIENT
  Age: 50 Year
  Sex: Female
  Weight: 44 kg

DRUGS (13)
  1. TAKEPRON [Concomitant]
     Active Substance: LANSOPRAZOLE
     Dosage: 15 MG, 1X/DAY
     Route: 048
     Dates: start: 20130227
  2. PANVITAN [Concomitant]
     Dosage: 1 G, 1X/DAY
     Route: 048
     Dates: start: 20121223, end: 20121231
  3. XALKORI [Suspect]
     Active Substance: CRIZOTINIB
     Dosage: 250 MG, 2X/DAY
     Dates: start: 20131120, end: 20131212
  4. MAGMITT [Concomitant]
     Active Substance: MAGNESIUM OXIDE
     Dosage: 500 MG, 2X/DAY
     Route: 048
     Dates: start: 20130227
  5. DIART [Concomitant]
     Active Substance: AZOSEMIDE
     Dosage: 60 MG, 1X/DAY
     Route: 048
     Dates: end: 20121228
  6. ULCERLMIN [Concomitant]
     Active Substance: SUCRALFATE
     Dosage: 1 G, 1X/DAY
     Route: 048
     Dates: start: 20130227
  7. XALKORI [Suspect]
     Active Substance: CRIZOTINIB
     Indication: NON-SMALL CELL LUNG CANCER
     Dosage: 250 MG, 2X/DAY
     Route: 048
     Dates: start: 20121212, end: 20121225
  8. OPSO [Concomitant]
     Active Substance: MORPHINE HYDROCHLORIDE
     Dosage: 10 MG, AS NEEDED
     Route: 048
     Dates: end: 20121225
  9. PRIMPERAN [Concomitant]
     Active Substance: METOCLOPRAMIDE HYDROCHLORIDE
     Dosage: 5 MG, AS NEEDED
     Route: 048
     Dates: end: 20121228
  10. MAGMITT [Concomitant]
     Active Substance: MAGNESIUM OXIDE
     Dosage: 500 MG, 3X/DAY
     Route: 048
     Dates: end: 20121228
  11. XALKORI [Suspect]
     Active Substance: CRIZOTINIB
     Dosage: 250 MG, 2X/DAY
     Route: 048
     Dates: start: 20130109, end: 20131022
  12. TAKEPRON [Concomitant]
     Active Substance: LANSOPRAZOLE
     Dosage: 30 MG, 1X/DAY
     Route: 048
     Dates: end: 20121228
  13. SENNOSIDE [Concomitant]
     Active Substance: SENNOSIDES
     Dosage: 12 MG, AS NEEDED
     Route: 048
     Dates: end: 20121228

REACTIONS (2)
  - Renal abscess [Recovering/Resolving]
  - Enterocolitis [Recovered/Resolved]

NARRATIVE: CASE EVENT DATE: 20121225
